FAERS Safety Report 20986000 (Version 1)
Quarter: 2022Q2

REPORT INFORMATION
  Report Type: Report from Study
  Country: AU (occurrence: AU)
  Receive Date: 20220621
  Receipt Date: 20220621
  Transmission Date: 20220720
  Serious: Yes (Hospitalization, Other)
  Sender: FDA-Public Use
  Company Number: AU-BRISTOL-MYERS SQUIBB COMPANY-BMS-2021-032095

PATIENT
  Age: 43 Year
  Sex: Female
  Weight: 54 kg

DRUGS (9)
  1. NIVOLUMAB [Suspect]
     Active Substance: NIVOLUMAB
     Indication: Malignant melanoma
     Dosage: 480 MILLIGRAM ON 17-FEB-2021
     Route: 042
     Dates: start: 20210118, end: 20210318
  2. PANTOPRAZOLE [Concomitant]
     Active Substance: PANTOPRAZOLE
     Indication: Product used for unknown indication
     Dosage: ONGOING
     Route: 048
     Dates: start: 20201210
  3. PANADOL [Concomitant]
     Active Substance: ACETAMINOPHEN
     Indication: Headache
     Route: 048
     Dates: start: 20210327, end: 20210409
  4. THYROXINE [Concomitant]
     Active Substance: LEVOTHYROXINE
     Indication: Hyperthyroidism
     Dosage: ONGOING
     Route: 048
     Dates: start: 20210319
  5. VITAMIN B12 [Concomitant]
     Active Substance: CYANOCOBALAMIN
     Indication: Product used for unknown indication
     Dosage: SPRAY?1 DOSAGE FORM= 1 UNIT NOS?ONGOING
     Route: 048
     Dates: start: 2017
  6. VITAMINS [Concomitant]
     Active Substance: VITAMINS
     Indication: Product used for unknown indication
     Dosage: 1 DOSAGE FORM= 1 UNIT NOS?ONGOING
     Route: 048
     Dates: start: 2017
  7. QV SKIN [Concomitant]
     Indication: Rash
     Dosage: QV CREAM SKIN BASIC?1 DOSAGE FORM = 1 UNIT NOS?ONGOING
     Route: 061
     Dates: start: 20210125
  8. COMIRNATY [Concomitant]
     Active Substance: TOZINAMERAN
     Indication: Prophylaxis
     Dosage: 1ST DOSE
     Route: 030
     Dates: start: 20210820
  9. COMIRNATY [Concomitant]
     Active Substance: TOZINAMERAN
     Dosage: 2ND DOSE
     Route: 030
     Dates: start: 20210910

REACTIONS (1)
  - Multisystem inflammatory syndrome in adults [Recovered/Resolved]

NARRATIVE: CASE EVENT DATE: 20210331
